FAERS Safety Report 18670865 (Version 1)
Quarter: 2020Q4

REPORT INFORMATION
  Report Type: Report from Study
  Country: None (occurrence: BR)
  Receive Date: 20201228
  Receipt Date: 20201228
  Transmission Date: 20210114
  Serious: Yes (Death, Life-Threatening, Other)
  Sender: FDA-Public Use
  Company Number: BR-ABBVIE-20K-020-3708777-00

PATIENT
  Age: 17 Year
  Sex: Male

DRUGS (1)
  1. IMBRUVICA [Suspect]
     Active Substance: IBRUTINIB
     Indication: CHRONIC MYELOID LEUKAEMIA
     Route: 048

REACTIONS (5)
  - Sepsis [Fatal]
  - Product use in unapproved indication [Unknown]
  - Product use issue [Unknown]
  - Pulmonary fibrosis [Unknown]
  - Off label use [Unknown]
